FAERS Safety Report 9518723 (Version 1)
Quarter: 2013Q1

REPORT INFORMATION
  Report Type: Spontaneous
  Country: US (occurrence: None)
  Receive Date: 20130305
  Receipt Date: 20130305
  Transmission Date: 20140127
  Serious: Yes (Other)
  Sender: FDA-Public Use
  Company Number: 163-21880-12073201

PATIENT
  Age: 65 Year
  Sex: Female
  Weight: 67.13 kg

DRUGS (10)
  1. REVLIMID [Suspect]
     Dosage: 14, PO
     Route: 048
     Dates: start: 200811
  2. CELEXA (CITALOPRAM HYDROBROMIDE) (UNKNOWN) [Concomitant]
  3. DEXAMETHASONE (DEXAMETHASONE) (UNKNOWN)? [Concomitant]
  4. GLUCOSAMINE/CHONDROITIN (GLUCOSAMINE W/CHONDROITIN SULFATE) (UNKNOWN)? [Concomitant]
  5. LOPRESSOR (METOPROLOL TARTRATE) (UNKNOWN) [Concomitant]
  6. LYRICA (PREGABALIN) (UNKNOWN) [Concomitant]
  7. OMEGA-3 ACIDS [Concomitant]
  8. VITAMIN B (VITAMIN B) (UNKNOWN) [Concomitant]
  9. VOLTAREN (DICLOFENAC SODIUM) (UNKNOWN) [Concomitant]
  10. ZOMETA (ZOLEDRONIC ACID) (UNKNOWN) [Concomitant]

REACTIONS (3)
  - Nervousness [None]
  - Therapeutic response decreased [None]
  - Pain [None]
